FAERS Safety Report 15499370 (Version 1)
Quarter: 2018Q4

REPORT INFORMATION
  Report Type: Spontaneous
  Country: DE (occurrence: DE)
  Receive Date: 20181015
  Receipt Date: 20181015
  Transmission Date: 20190205
  Serious: Yes (Hospitalization, Other)
  Sender: FDA-Public Use
  Company Number: DE-GLAXOSMITHKLINE-DE2018183074

PATIENT
  Age: 42 Year
  Sex: Female

DRUGS (7)
  1. NOVAMINSULFON 1A PHARMA [Suspect]
     Active Substance: METAMIZOLE SODIUM
     Indication: KNEE OPERATION
     Dosage: UNK
     Route: 065
  2. DICLOFENAC [Suspect]
     Active Substance: DICLOFENAC
     Indication: KNEE OPERATION
     Dosage: 225 MG, QD
     Route: 065
  3. BROMELAIN [Suspect]
     Active Substance: BROMELAINS
     Indication: KNEE OPERATION
     Dosage: UNK
     Route: 065
  4. LYRICA [Suspect]
     Active Substance: PREGABALIN
     Indication: KNEE OPERATION
     Dosage: UNK
     Route: 065
  5. PANTOPRAZOLE SODIUM SESQUIHYDRATE [Suspect]
     Active Substance: PANTOPRAZOLE SODIUM
     Indication: KNEE OPERATION
     Dosage: UNK
     Route: 065
  6. MCP-RATIOPHARM [Suspect]
     Active Substance: METOCLOPRAMIDE HYDROCHLORIDE
     Indication: KNEE OPERATION
     Dosage: UNK
     Route: 048
  7. XARELTO [Suspect]
     Active Substance: RIVAROXABAN
     Indication: KNEE OPERATION
     Dosage: UNK
     Route: 065

REACTIONS (8)
  - Coma [Recovered/Resolved]
  - Analgesic drug level increased [Unknown]
  - Discomfort [Not Recovered/Not Resolved]
  - Sepsis [Recovered/Resolved]
  - Pulmonary function test abnormal [Not Recovered/Not Resolved]
  - Hepatic failure [Recovered/Resolved]
  - Poisoning [Recovered/Resolved]
  - Pneumonia [Unknown]

NARRATIVE: CASE EVENT DATE: 2013
